FAERS Safety Report 5707856-0 (Version None)
Quarter: 2008Q2

REPORT INFORMATION
  Report Type: 
  Country: None (occurrence: None)
  Receive Date: 20080417
  Receipt Date: 20080410
  Transmission Date: 20081010
  Serious: Yes (Hospitalization)
  Sender: FDA-Public Use
  Company Number: FR-WYE-G01380708

PATIENT
  Sex: Female

DRUGS (16)
  1. TAZOCILLINE [Suspect]
     Indication: LUNG DISORDER
     Dosage: UNKNOWN
     Route: 042
     Dates: start: 20071024, end: 20071029
  2. ASPEGIC 1000 [Suspect]
     Indication: PROPHYLAXIS
     Dosage: UNKNOWN
     Route: 048
     Dates: start: 20070924, end: 20071212
  3. KEPPRA [Suspect]
     Indication: PROPHYLAXIS
     Dosage: UNKNOWN
     Route: 048
     Dates: start: 20070924, end: 20071212
  4. TARGOCID [Suspect]
     Indication: LUNG DISORDER
     Dosage: UNKNOWN
     Route: 042
     Dates: start: 20071024, end: 20071029
  5. TRIFLUCAN [Suspect]
     Indication: LUNG INFECTION
     Dosage: UNKNOWN
     Route: 048
     Dates: start: 20071029, end: 20071108
  6. LANTUS [Concomitant]
     Indication: TYPE 2 DIABETES MELLITUS
     Dosage: UNKNOWN
  7. AMIKACIN [Suspect]
     Indication: STAPHYLOCOCCAL INFECTION
     Dosage: UNKNOWN
     Route: 030
     Dates: start: 20071024, end: 20071029
  8. LOVENOX [Concomitant]
     Dosage: UNKNOWN
     Route: 058
  9. EUPRESSYL [Concomitant]
     Indication: HYPERTENSION
     Dosage: UNKNOWN
     Route: 048
     Dates: start: 20071107
  10. CORDARONE [Concomitant]
     Indication: ARRHYTHMIA
     Dosage: UNKNOWN
     Dates: start: 20071024
  11. NEXIUM [Concomitant]
     Dosage: UNKNOWN
     Route: 048
     Dates: start: 20071212
  12. ZYVOX [Suspect]
     Indication: URINARY TRACT INFECTION ENTEROCOCCAL
     Dosage: UNKNOWN
     Route: 042
     Dates: start: 20071029, end: 20071108
  13. ZYVOX [Suspect]
     Indication: STAPHYLOCOCCAL BACTERAEMIA
  14. ZYVOX [Suspect]
     Indication: LUNG DISORDER
  15. PYOSTACINE [Suspect]
     Indication: URINARY TRACT INFECTION ENTEROCOCCAL
     Dosage: UNKNOWN
     Route: 048
     Dates: start: 20071029, end: 20071108
  16. PYOSTACINE [Suspect]
     Indication: STAPHYLOCOCCAL BACTERAEMIA

REACTIONS (6)
  - BONE MARROW FAILURE [None]
  - HAEMOLYSIS [None]
  - HYPOVITAMINOSIS [None]
  - MARROW HYPERPLASIA [None]
  - PANCYTOPENIA [None]
  - SERUM FERRITIN INCREASED [None]
